FAERS Safety Report 4732250-9 (Version None)
Quarter: 2005Q3

REPORT INFORMATION
  Report Type: 
  Country: None (occurrence: None)
  Receive Date: 20050726
  Receipt Date: 20031212
  Transmission Date: 20060218
  Serious: Yes (Life-Threatening, Hospitalization)
  Sender: FDA-Public Use
  Company Number: 04GER0023

PATIENT
  Age: 76 Year
  Sex: Female

DRUGS (6)
  1. AGGRASTAT [Suspect]
     Indication: ISCHAEMIC STROKE
     Dosage: 13 ML
     Dates: start: 20031027, end: 20031028
  2. ACETYLCYSTEINE [Concomitant]
  3. CLONIDINE [Concomitant]
  4. LEVOFLOXACIN [Concomitant]
  5. MAGNESIUM [Concomitant]
  6. URAPIDIL [Concomitant]

REACTIONS (2)
  - CARDIAC FAILURE [None]
  - PULMONARY CONGESTION [None]
